FAERS Safety Report 20231934 (Version 1)
Quarter: 2021Q4

REPORT INFORMATION
  Report Type: Spontaneous
  Country: CA (occurrence: CA)
  Receive Date: 20211227
  Receipt Date: 20211227
  Transmission Date: 20220303
  Serious: Yes (Death, Other)
  Sender: FDA-Public Use
  Company Number: CA-APOTEX-2021AP046820

PATIENT
  Age: 22 Year
  Sex: Female

DRUGS (16)
  1. HALOPERIDOL [Suspect]
     Active Substance: HALOPERIDOL
     Indication: Vomiting
     Dosage: UNK
     Route: 065
  2. HALOPERIDOL [Suspect]
     Active Substance: HALOPERIDOL
     Indication: Nausea
  3. OLANZAPINE [Suspect]
     Active Substance: OLANZAPINE
     Indication: Vomiting
     Dosage: UNK
     Route: 065
  4. OLANZAPINE [Suspect]
     Active Substance: OLANZAPINE
     Dosage: 5 MILLIGRAM
     Route: 065
  5. ONDANSETRON [Suspect]
     Active Substance: ONDANSETRON
     Indication: Vomiting
     Dosage: UNK
     Route: 065
  6. ONDANSETRON [Suspect]
     Active Substance: ONDANSETRON
     Dosage: 8 MILLIGRAM
     Route: 065
  7. ONDANSETRON [Suspect]
     Active Substance: ONDANSETRON
     Indication: Vomiting
     Dosage: UNK
     Route: 065
  8. LORAZEPAM [Concomitant]
     Active Substance: LORAZEPAM
     Indication: Vomiting
     Dosage: UNK
     Route: 065
  9. LORAZEPAM [Concomitant]
     Active Substance: LORAZEPAM
     Indication: Anxiolytic therapy
  10. METOCLOPRAMIDE [Concomitant]
     Active Substance: METOCLOPRAMIDE
     Indication: Vomiting
     Dosage: UNK
     Route: 065
  11. POTASSIUM [Concomitant]
     Active Substance: POTASSIUM
     Indication: Vomiting
     Dosage: UNK
     Route: 065
  12. GRAVOL [Concomitant]
     Active Substance: DIMENHYDRINATE
     Indication: Vomiting
     Dosage: UNK
     Route: 065
  13. GRAVOL [Concomitant]
     Active Substance: DIMENHYDRINATE
     Indication: Anxiety
  14. KETOROLAC [Concomitant]
     Active Substance: KETOROLAC TROMETHAMINE
     Indication: Vomiting
     Dosage: UNK
     Route: 065
  15. DIMENHYDRINATE [Concomitant]
     Active Substance: DIMENHYDRINATE
     Indication: Vomiting
     Dosage: 50 MILLIGRAM
     Route: 065
  16. CANNABIS SATIVA SUBSP. INDICA TOP [Concomitant]
     Active Substance: CANNABIS SATIVA SUBSP. INDICA TOP
     Indication: Product used for unknown indication
     Dosage: UNK
     Route: 065

REACTIONS (5)
  - Cardiac arrest [Fatal]
  - Hypoxic-ischaemic encephalopathy [Fatal]
  - Ventricular arrhythmia [Fatal]
  - Electrocardiogram QT prolonged [Fatal]
  - Torsade de pointes [Fatal]
